FAERS Safety Report 11985719 (Version 7)
Quarter: 2017Q4

REPORT INFORMATION
  Report Type: Report from Study
  Country: AU (occurrence: AU)
  Receive Date: 20160201
  Receipt Date: 20171215
  Transmission Date: 20180320
  Serious: Yes (Hospitalization, Other)
  Sender: FDA-Public Use
  Company Number: PHHY2015AU071362

PATIENT
  Age: 32 Year
  Sex: Male
  Weight: 99.4 kg

DRUGS (14)
  1. CLOZARIL [Suspect]
     Active Substance: CLOZAPINE
     Dosage: 150 MG, UNK
     Route: 048
     Dates: start: 20160129
  2. OLANZAPINE. [Suspect]
     Active Substance: OLANZAPINE
     Indication: SCHIZOPHRENIA
     Dosage: 10 MG, BID
     Route: 065
  3. SERTRALINE [Suspect]
     Active Substance: SERTRALINE HYDROCHLORIDE
     Indication: PRODUCT USED FOR UNKNOWN INDICATION
     Dosage: 50 MG, QD
     Route: 065
  4. RAMIPRIL. [Concomitant]
     Active Substance: RAMIPRIL
     Dosage: 2.5 MG, UNK
     Route: 065
  5. CLOZARIL [Suspect]
     Active Substance: CLOZAPINE
     Dosage: 325 MG, UNK
     Route: 048
     Dates: start: 20150430, end: 20170601
  6. HALOPERIDOL. [Suspect]
     Active Substance: HALOPERIDOL
     Indication: SCHIZOPHRENIA
     Dosage: 5 MG, BID
     Route: 065
  7. HALOPERIDOL DECANOATE. [Suspect]
     Active Substance: HALOPERIDOL DECANOATE
     Indication: SCHIZOPHRENIA
     Dosage: 50 MG, EVERY 4 WEEKS
     Route: 065
  8. ZUCLOPENTHIXOL DECANOATE [Concomitant]
     Active Substance: ZUCLOPENTHIXOL DECANOATE
     Indication: PRODUCT USED FOR UNKNOWN INDICATION
     Dosage: 75 MG, LAST DOSE GIVEN ON 24 JAN 2017
  9. CLOZARIL [Suspect]
     Active Substance: CLOZAPINE
     Indication: SCHIZOPHRENIA
     Dosage: 250 MG, UNK
     Route: 048
     Dates: start: 20080522
  10. CLOZARIL [Suspect]
     Active Substance: CLOZAPINE
     Dosage: 250 MG, UNK
     Route: 048
     Dates: start: 20150621, end: 201506
  11. CLOZARIL [Suspect]
     Active Substance: CLOZAPINE
     Dosage: 125 MG, UNK
     Route: 048
     Dates: start: 20160206
  12. CLOZARIL [Suspect]
     Active Substance: CLOZAPINE
     Dosage: 125 MG, NOCTE
     Route: 048
     Dates: start: 20171027
  13. LITHIUM. [Concomitant]
     Active Substance: LITHIUM
     Indication: PRODUCT USED FOR UNKNOWN INDICATION
     Dosage: 450 MG, NOCTE
     Route: 065
     Dates: end: 20170413
  14. BENZTROPINE [Concomitant]
     Active Substance: BENZTROPINE
     Indication: PRODUCT USED FOR UNKNOWN INDICATION
     Dosage: UNK
     Route: 065
     Dates: end: 20170124

REACTIONS (24)
  - Blood lactate dehydrogenase increased [Unknown]
  - Blood creatinine increased [Not Recovered/Not Resolved]
  - Psychiatric decompensation [Unknown]
  - Cardiomyopathy [Recovering/Resolving]
  - Myocarditis [Unknown]
  - Blood bicarbonate decreased [Unknown]
  - Blood uric acid increased [Unknown]
  - Globulins decreased [Unknown]
  - Antipsychotic drug level decreased [Unknown]
  - Blood glucose increased [Unknown]
  - Defect conduction intraventricular [Unknown]
  - Left ventricular dysfunction [Recovered/Resolved]
  - Cardiac disorder [Unknown]
  - Echocardiogram abnormal [Unknown]
  - Ejection fraction decreased [Recovered/Resolved]
  - Blood bilirubin increased [Not Recovered/Not Resolved]
  - Aspartate aminotransferase increased [Not Recovered/Not Resolved]
  - Body mass index increased [Unknown]
  - Tachycardia [Unknown]
  - Left ventricular dysfunction [Recovered/Resolved]
  - Blood sodium decreased [Unknown]
  - Bilirubin conjugated increased [Not Recovered/Not Resolved]
  - Ejection fraction decreased [Recovered/Resolved]
  - Heart rate irregular [Unknown]

NARRATIVE: CASE EVENT DATE: 2008
